FAERS Safety Report 10246412 (Version 1)
Quarter: 2014Q2

REPORT INFORMATION
  Report Type: Spontaneous
  Country: US (occurrence: US)
  Receive Date: 20140619
  Receipt Date: 20140619
  Transmission Date: 20141212
  Serious: No
  Sender: FDA-Public Use
  Company Number: US-PFIZER INC-2014163942

PATIENT
  Sex: Male

DRUGS (6)
  1. GABAPENTIN [Suspect]
     Dosage: UNK
  2. CODEINE [Suspect]
     Dosage: UNK
  3. ULTRAM [Suspect]
     Dosage: UNK
  4. CRESTOR [Suspect]
     Dosage: UNK
  5. ZETIA [Suspect]
  6. NIACIN [Suspect]

REACTIONS (1)
  - Drug hypersensitivity [Unknown]
